FAERS Safety Report 11819890 (Version 1)
Quarter: 2015Q4

REPORT INFORMATION
  Report Type: Spontaneous
  Country: US (occurrence: None)
  Receive Date: 20151209
  Receipt Date: 20151209
  Transmission Date: 20160305
  Serious: No
  Sender: FDA-Public Use
  Company Number: None

PATIENT
  Age: 28 Year
  Sex: Female

DRUGS (3)
  1. IBRANCE [Suspect]
     Active Substance: PALBOCICLIB
     Indication: BREAST CANCER
     Dosage: 125MG, 21 DAYS ON 7 OFF
     Route: 048
     Dates: start: 20151110
  2. FEMARA [Concomitant]
     Active Substance: LETROZOLE
  3. PROCHLORPER [Concomitant]

REACTIONS (5)
  - Vomiting [None]
  - Hot flush [None]
  - Weight decreased [None]
  - Decreased appetite [None]
  - Fatigue [None]
